FAERS Safety Report 13088510 (Version 1)
Quarter: 2017Q1

REPORT INFORMATION
  Report Type: Report from Study
  Country: None (occurrence: US)
  Receive Date: 20170105
  Receipt Date: 20170105
  Transmission Date: 20170428
  Serious: Yes (Hospitalization, Other)
  Sender: FDA-Public Use
  Company Number: US-ABBVIE-16K-163-1826341-00

PATIENT
  Sex: Female

DRUGS (1)
  1. HUMIRA [Suspect]
     Active Substance: ADALIMUMAB
     Indication: RHEUMATOID ARTHRITIS
     Route: 058
     Dates: end: 2016

REACTIONS (10)
  - Nephrolithiasis [Recovering/Resolving]
  - Nephrolithiasis [Recovered/Resolved]
  - Vertebral osteophyte [Unknown]
  - Device related infection [Unknown]
  - Rheumatoid arthritis [Not Recovered/Not Resolved]
  - Rotator cuff syndrome [Unknown]
  - Drug ineffective [Not Recovered/Not Resolved]
  - Swelling [Unknown]
  - Asthenia [Unknown]
  - Procedural complication [Unknown]

NARRATIVE: CASE EVENT DATE: 2016
